FAERS Safety Report 5584209-X (Version None)
Quarter: 2008Q1

REPORT INFORMATION
  Report Type: 
  Country: None (occurrence: None)
  Receive Date: 20080103
  Receipt Date: 20071221
  Transmission Date: 20080703
  Serious: Yes (Disabling, Other)
  Sender: FDA-Public Use
  Company Number: DSA_30965_2007

PATIENT
  Sex: Female
  Weight: 108.8633 kg

DRUGS (3)
  1. CARDIZEM LA [Suspect]
     Indication: DRUG USE FOR UNKNOWN INDICATION
     Dosage: 1 DF 1 DF ORAL
     Route: 048
     Dates: start: 20050217
  2. QUINARETIC [Suspect]
     Indication: DRUG USE FOR UNKNOWN INDICATION
     Dosage: 1 DF 1 DF ORAL
     Route: 048
     Dates: start: 20050217
  3. CLONIDINE [Suspect]
     Indication: DRUG USE FOR UNKNOWN INDICATION
     Dosage: 3 DF 3 DF ORAL
     Route: 048
     Dates: start: 20040321

REACTIONS (1)
  - DIABETES MELLITUS [None]
